FAERS Safety Report 19814468 (Version 2)
Quarter: 2021Q4

REPORT INFORMATION
  Report Type: Spontaneous
  Country: US (occurrence: None)
  Receive Date: 20210909
  Receipt Date: 20211130
  Transmission Date: 20220303
  Serious: Yes (Death, Hospitalization)
  Sender: FDA-Public Use
  Company Number: US-ROCHE-2905098

PATIENT
  Age: 78 Year
  Sex: Female

DRUGS (3)
  1. AVASTIN [Suspect]
     Active Substance: BEVACIZUMAB
     Indication: Product used for unknown indication
     Route: 065
     Dates: start: 20210420
  2. LONSURF [Suspect]
     Active Substance: TIPIRACIL HYDROCHLORIDE\TRIFLURIDINE
     Indication: Product used for unknown indication
     Dosage: CYCLE 1
     Route: 048
     Dates: start: 20210420
  3. AMLODIPINE [Concomitant]
     Active Substance: AMLODIPINE BESYLATE

REACTIONS (8)
  - Peritonitis bacterial [Fatal]
  - Neuropathy peripheral [Fatal]
  - Pneumonia aspiration [Fatal]
  - Lactic acidosis [Fatal]
  - Acute respiratory failure [Fatal]
  - Septic shock [Fatal]
  - Ascites [Fatal]
  - Disease progression [Fatal]

NARRATIVE: CASE EVENT DATE: 20210720
